FAERS Safety Report 5073299-9 (Version None)
Quarter: 2006Q3

REPORT INFORMATION
  Report Type: 
  Country: None (occurrence: None)
  Receive Date: 20060802
  Receipt Date: 20060725
  Transmission Date: 20061208
  Serious: Yes (Other)
  Sender: FDA-Public Use
  Company Number: 2006091443

PATIENT
  Sex: Female

DRUGS (2)
  1. GEODON [Suspect]
     Indication: BIPOLAR DISORDER
     Dosage: 60 MG (60 MG, 1 IN 1 D)
  2. LITHIUM (LITHIUM) [Concomitant]

REACTIONS (1)
  - TARDIVE DYSKINESIA [None]
